FAERS Safety Report 8212125-3 (Version None)
Quarter: 2012Q1

REPORT INFORMATION
  Report Type: 
  Country: None (occurrence: None)
  Receive Date: 20120315
  Receipt Date: 20120312
  Transmission Date: 20120608
  Serious: Yes (Hospitalization, Other)
  Sender: FDA-Public Use
  Company Number: PHHY2011CA02254

PATIENT
  Sex: Female

DRUGS (24)
  1. ZOLEDRONOC ACID [Suspect]
     Dosage: 5 MG, YEARLY
     Route: 042
     Dates: start: 20110126
  2. CRESTOR [Concomitant]
     Indication: BLOOD CHOLESTEROL
     Dosage: 10 MG, UNK
  3. PANTOPRAZOLE SODIUM [Concomitant]
  4. LENOLTECH NO 3 [Concomitant]
     Dosage: 1-2 TAB EVERY 4 HRS
  5. GABAPENTIN [Concomitant]
     Indication: PAIN
     Dosage: 2 DF, BID
  6. LORAZEPAM [Concomitant]
     Dosage: 1 DF, QD AT BEDTIME
  7. MIACALCIN [Concomitant]
     Indication: OSTEOPOROSIS
     Dosage: 1 SPRAY DAILY
  8. SOFLAX [Concomitant]
  9. PROPOLIS [Concomitant]
     Dosage: 3X 50 DROP DAILY
  10. SALBUTAMOL [Concomitant]
     Dosage: 1 PUFF DAILY
  11. ZOLEDRONOC ACID [Suspect]
     Dosage: 5 MG, YEARLY
     Route: 042
     Dates: start: 20091208
  12. DURAGESIC-100 [Concomitant]
     Dosage: 50 UG, 1X 72
  13. FLOVENT [Concomitant]
     Dosage: 2 PUFFS TWICE DAILY
  14. CALCIUM [Concomitant]
     Dosage: 1800 MG, UNK
  15. VITAMIN D [Concomitant]
     Dosage: 3400 IU, UNK
  16. MULTI-VITAMINS [Concomitant]
  17. POTASSIUM [Concomitant]
     Indication: MINERAL SUPPLEMENTATION
     Dosage: 2 DF, BID
  18. ZOLEDRONOC ACID [Suspect]
     Indication: OSTEOPOROSIS
     Dosage: 5 MG, YEARLY
     Route: 042
     Dates: start: 20080101
  19. SYNTHROID [Concomitant]
     Indication: THYROID DISORDER
  20. VITAMIN B-12 [Concomitant]
     Dosage: 1 DF, UNK
  21. ZOLEDRONOC ACID [Suspect]
     Dosage: 5 MG, YEARLY
     Route: 042
     Dates: start: 20100101
  22. ASPIRIN [Concomitant]
     Dosage: 81 MG, UNK
  23. ATROVENT [Concomitant]
     Dosage: 2 PUFFS 3 TIMES A DAY
  24. DURAGESIC-100 [Concomitant]
     Indication: PAIN
     Dosage: 100 UG, 1X 72

REACTIONS (4)
  - OSTEOPOROSIS [None]
  - FALL [None]
  - BALANCE DISORDER [None]
  - FIBROCYSTIC BREAST DISEASE [None]
